FAERS Safety Report 4580584-3 (Version None)
Quarter: 2005Q1

REPORT INFORMATION
  Report Type: 
  Country: None (occurrence: None)
  Receive Date: 20050214
  Receipt Date: 20040416
  Transmission Date: 20050727
  Serious: No
  Sender: FDA-Public Use
  Company Number: US-GLAXOSMITHKLINE-A0507468A

PATIENT
  Age: 22 Year
  Sex: Female

DRUGS (2)
  1. LAMICTAL [Suspect]
     Dosage: 200MG PER DAY
     Route: 048
     Dates: start: 20031110, end: 20040414
  2. LEXAPRO [Concomitant]
     Dosage: 15MG PER DAY
     Route: 048
     Dates: start: 20031008

REACTIONS (2)
  - HERPES ZOSTER [None]
  - PAIN [None]
